FAERS Safety Report 15193542 (Version 1)
Quarter: 2018Q3

REPORT INFORMATION
  Report Type: Spontaneous
  Country: US (occurrence: US)
  Receive Date: 20180626
  Receipt Date: 20180626
  Transmission Date: 20181010
  Serious: Yes (Hospitalization)
  Sender: FDA-Public Use
  Company Number: None

PATIENT
  Age: 48 Year
  Sex: Male
  Weight: 114 kg

DRUGS (1)
  1. PAZOPANIB (GW7860340 [Suspect]
     Active Substance: PAZOPANIB
     Dates: end: 20180521

REACTIONS (11)
  - Pleural effusion [None]
  - White blood cell count increased [None]
  - Pneumonia [None]
  - Dyspnoea [None]
  - Oxygen saturation decreased [None]
  - Atelectasis [None]
  - Procalcitonin increased [None]
  - Pulmonary mass [None]
  - Respiratory failure [None]
  - Tachycardia [None]
  - Pulmonary necrosis [None]

NARRATIVE: CASE EVENT DATE: 20180618
